FAERS Safety Report 14006314 (Version 2)
Quarter: 2017Q4

REPORT INFORMATION
  Report Type: Report from Study
  Country: None (occurrence: BE)
  Receive Date: 20170924
  Receipt Date: 20171019
  Transmission Date: 20180321
  Serious: Yes (Hospitalization, Other)
  Sender: FDA-Public Use
  Company Number: BE-ABBVIE-17P-013-2049016-00

PATIENT
  Sex: Female

DRUGS (5)
  1. DUODOPA [Suspect]
     Active Substance: CARBIDOPA\LEVODOPA
     Dosage: MD=6.5ML??CD=3.9ML/HR DURING 16HRS ??EDA=2.5ML
     Route: 050
     Dates: start: 20160811
  2. DUODOPA [Suspect]
     Active Substance: CARBIDOPA\LEVODOPA
     Dosage: DOSES CONTINUOUSLY MONITORED AND ADAPTED
     Route: 050
     Dates: start: 20160316, end: 20160811
  3. GLUCOPHAGE [Concomitant]
     Active Substance: METFORMIN HYDROCHLORIDE
     Indication: PRODUCT USED FOR UNKNOWN INDICATION
  4. DUODOPA [Suspect]
     Active Substance: CARBIDOPA\LEVODOPA
     Indication: PARKINSON^S DISEASE
     Dosage: MD=5.5ML??CD=2.6ML/HR DURING 16HRS ??EDA=1ML
     Route: 050
     Dates: start: 20160229, end: 20160316
  5. ASAFLOW [Concomitant]
     Active Substance: ASPIRIN
     Indication: PRODUCT USED FOR UNKNOWN INDICATION

REACTIONS (5)
  - Stoma site hypergranulation [Unknown]
  - Hospitalisation [Not Recovered/Not Resolved]
  - Stoma site discharge [Unknown]
  - Knee operation [Unknown]
  - Stoma site infection [Unknown]

NARRATIVE: CASE EVENT DATE: 2016
